FAERS Safety Report 8209958 (Version 2)
Quarter: 2012Q4

REPORT INFORMATION
  Report Type: 
  Country: US (occurrence: US)
  Receive Date: 20111028
  Receipt Date: 20121023
  Transmission Date: 20130627
  Serious: No
  Sender: FDA-Public Use
  Company Number: US-AMGEN-USASP2010012336

PATIENT
  Sex: Male
  Weight: 126.98 kg

DRUGS (3)
  1. ENBREL [Suspect]
     Indication: RHEUMATOID ARTHRITIS
     Dates: start: 200001, end: 201010
  2. ENBREL [Suspect]
     Dosage: UNK UNK, qwk
     Route: 058
     Dates: start: 20060710, end: 20100928
  3. HUMIRA [Concomitant]

REACTIONS (3)
  - Nausea [Not Recovered/Not Resolved]
  - Hyperhidrosis [Not Recovered/Not Resolved]
  - Psoriasis [Not Recovered/Not Resolved]
